FAERS Safety Report 16397557 (Version 1)
Quarter: 2019Q2

REPORT INFORMATION
  Report Type: Spontaneous
  Country: NL (occurrence: NL)
  Receive Date: 20190606
  Receipt Date: 20190606
  Transmission Date: 20190711
  Serious: Yes (Hospitalization, Other)
  Sender: FDA-Public Use
  Company Number: NL-SA-2019SA153143

PATIENT
  Age: 14 Year
  Sex: Male

DRUGS (8)
  1. ISONIAZID. [Suspect]
     Active Substance: ISONIAZID
     Dosage: 400 MG, QD
     Route: 042
     Dates: start: 20020201, end: 20020215
  2. TARIVID [Suspect]
     Active Substance: OFLOXACIN
     Dosage: 250 MG, BID
     Route: 042
  3. ETHAMBUTOL [Suspect]
     Active Substance: ETHAMBUTOL HYDROCHLORIDE
     Dosage: 1000 MG, QD
     Route: 042
     Dates: start: 20020201, end: 20020424
  4. METRONIDAZOL [METRONIDAZOLE] [Concomitant]
     Active Substance: METRONIDAZOLE
     Dosage: 500 MG, TID
     Route: 042
     Dates: start: 20020414, end: 20020424
  5. PYRAZINAMIDE. [Suspect]
     Active Substance: PYRAZINAMIDE
     Dosage: 500 MG, QD
     Route: 042
     Dates: start: 20020201, end: 20020424
  6. RIFADIN [Suspect]
     Active Substance: RIFAMPIN
     Dosage: 600 MG, QD
     Route: 042
     Dates: start: 20020201, end: 20020414
  7. PYRIDOXINE [Concomitant]
     Active Substance: PYRIDOXINE
     Dosage: 20 MG, QD
     Route: 042
     Dates: start: 20020201, end: 20020424
  8. RIFADIN [Suspect]
     Active Substance: RIFAMPIN

REACTIONS (1)
  - Hypokalaemia [Not Recovered/Not Resolved]

NARRATIVE: CASE EVENT DATE: 20020417
